FAERS Safety Report 5778834-0 (Version None)
Quarter: 2008Q2

REPORT INFORMATION
  Report Type: 
  Country: None (occurrence: None)
  Receive Date: 20080617
  Receipt Date: 20070511
  Transmission Date: 20081010
  Serious: Yes (Life-Threatening)
  Sender: FDA-Public Use
  Company Number: DILUS-07-0424

PATIENT

DRUGS (1)
  1. DIPRIVAN [Suspect]
     Indication: ENDOSCOPY
     Dosage: 10 MG/ML

REACTIONS (1)
  - RESPIRATORY ARREST [None]
